FAERS Safety Report 18627663 (Version 2)
Quarter: 2021Q2

REPORT INFORMATION
  Report Type: Report from Study
  Country: JP (occurrence: JP)
  Receive Date: 20201217
  Receipt Date: 20210607
  Transmission Date: 20210717
  Serious: No
  Sender: FDA-Public Use
  Company Number: JP-EMD SERONO-9195775

PATIENT
  Age: 52 Year
  Sex: Male
  Weight: 61 kg

DRUGS (8)
  1. ACETAMINOPHEN. [Concomitant]
     Active Substance: ACETAMINOPHEN
     Indication: PREMEDICATION
     Route: 048
     Dates: start: 20201028, end: 20210106
  2. BAVENCIO [Suspect]
     Active Substance: AVELUMAB
     Indication: METASTATIC RENAL CELL CARCINOMA
     Dosage: 3 VIALS 600 MG, ADMINISTRATION RATE: 600 ML/HOUR
     Route: 041
     Dates: start: 20201028, end: 20201028
  3. BAVENCIO [Suspect]
     Active Substance: AVELUMAB
     Dosage: AT A RATE OF 300 ML/HR
     Route: 042
     Dates: start: 20201111, end: 20201111
  4. DIPHENHYDRAMINE. [Concomitant]
     Active Substance: DIPHENHYDRAMINE
     Indication: PREMEDICATION
     Route: 048
     Dates: start: 20201028, end: 20210106
  5. BAVENCIO [Suspect]
     Active Substance: AVELUMAB
     Route: 042
     Dates: start: 20210106, end: 20210106
  6. BAVENCIO [Suspect]
     Active Substance: AVELUMAB
     Route: 042
     Dates: start: 20201125, end: 20201223
  7. INLYTA [Suspect]
     Active Substance: AXITINIB
     Indication: METASTATIC RENAL CELL CARCINOMA
     Route: 048
     Dates: start: 20201028, end: 20201112
  8. INLYTA [Suspect]
     Active Substance: AXITINIB
     Route: 048
     Dates: start: 20201113, end: 20210119

REACTIONS (2)
  - Infusion related reaction [Recovered/Resolved]
  - Platelet count decreased [Recovered/Resolved]

NARRATIVE: CASE EVENT DATE: 20201028
